FAERS Safety Report 8195390-0 (Version None)
Quarter: 2012Q1

REPORT INFORMATION
  Report Type: 
  Country: None (occurrence: None)
  Receive Date: 20120308
  Receipt Date: 20120307
  Transmission Date: 20120608
  Serious: Yes (Hospitalization)
  Sender: FDA-Public Use
  Company Number: DE-GLAXOSMITHKLINE-D0074666A

PATIENT
  Sex: Male
  Weight: 75 kg

DRUGS (3)
  1. ARIXTRA [Suspect]
     Dosage: 7.5MG PER DAY
     Route: 065
     Dates: end: 20120229
  2. METOPROLOL TARTRATE [Concomitant]
     Route: 065
  3. CLOPIDOGREL [Concomitant]
     Route: 065

REACTIONS (2)
  - HAEMORRHAGE [None]
  - OFF LABEL USE [None]
